FAERS Safety Report 5282254-5 (Version None)
Quarter: 2007Q1

REPORT INFORMATION
  Report Type: 
  Country: None (occurrence: None)
  Receive Date: 20070330
  Receipt Date: 20070320
  Transmission Date: 20070707
  Serious: Yes (Hospitalization, Other)
  Sender: FDA-Public Use
  Company Number: US-PFIZER INC-2007022944

PATIENT
  Sex: Female

DRUGS (5)
  1. CELEBREX [Suspect]
     Indication: ARTHRITIS
     Route: 048
     Dates: start: 20000522, end: 20000622
  2. VIOXX [Concomitant]
     Indication: ARTHRITIS
     Route: 048
     Dates: start: 20000801, end: 20021107
  3. FOSAMAX [Concomitant]
  4. PULMICORT [Concomitant]
  5. ALLEGRA [Concomitant]

REACTIONS (2)
  - CARDIOVASCULAR DISORDER [None]
  - ISCHAEMIC STROKE [None]
